FAERS Safety Report 22628389 (Version 3)
Quarter: 2025Q1

REPORT INFORMATION
  Report Type: Spontaneous
  Country: CA (occurrence: CA)
  Receive Date: 20230622
  Receipt Date: 20250325
  Transmission Date: 20250409
  Serious: Yes (Hospitalization, Other)
  Sender: ALEXION PHARMACEUTICALS
  Company Number: 2020SE86669

PATIENT
  Age: 58 Year

DRUGS (10)
  1. FULVESTRANT [Suspect]
     Active Substance: FULVESTRANT
     Indication: Breast cancer
  2. FULVESTRANT [Suspect]
     Active Substance: FULVESTRANT
  3. TAMOXIFEN [Suspect]
     Active Substance: TAMOXIFEN
     Indication: Breast cancer
  4. AFINITOR [Suspect]
     Active Substance: EVEROLIMUS
     Indication: Breast cancer
  5. AFINITOR [Suspect]
     Active Substance: EVEROLIMUS
  6. EXEMESTANE [Suspect]
     Active Substance: EXEMESTANE
     Indication: Breast cancer
     Route: 065
  7. EXEMESTANE [Suspect]
     Active Substance: EXEMESTANE
     Route: 065
  8. LETROZOLE [Suspect]
     Active Substance: LETROZOLE
     Indication: Metastases to peritoneum
     Route: 065
  9. PACLITAXEL [Suspect]
     Active Substance: PACLITAXEL
     Indication: Breast cancer
     Route: 065
  10. PACLITAXEL [Suspect]
     Active Substance: PACLITAXEL

REACTIONS (8)
  - Breast cancer metastatic [Unknown]
  - Illness [Unknown]
  - Malignant neoplasm progression [Unknown]
  - Toxicity to various agents [Unknown]
  - Abdominal discomfort [Unknown]
  - Decreased appetite [Unknown]
  - Nausea [Unknown]
  - Intestinal metastasis [Unknown]
